FAERS Safety Report 4847979-1 (Version None)
Quarter: 2005Q4

REPORT INFORMATION
  Report Type: 
  Country: None (occurrence: None)
  Receive Date: 20051208
  Receipt Date: 20051115
  Transmission Date: 20060501
  Serious: Yes (Life-Threatening)
  Sender: FDA-Public Use
  Company Number: PHBS2005JP16981

PATIENT
  Age: 82 Year
  Sex: Female
  Weight: 53 kg

DRUGS (5)
  1. VOLTAREN [Suspect]
     Indication: BACK PAIN
     Dosage: 25 MG/DAY
     Route: 054
     Dates: start: 20051114, end: 20051114
  2. ELCITONIN [Concomitant]
     Dosage: 1 DF/DAY
     Route: 030
     Dates: start: 20051114, end: 20051114
  3. LOXONIN [Concomitant]
     Dates: start: 20051026
  4. MARZULENE S [Concomitant]
     Dates: start: 20051026
  5. SELTOUCH [Concomitant]
     Dates: start: 20051026

REACTIONS (9)
  - BLOOD PRESSURE IMMEASURABLE [None]
  - BLOOD PRESSURE INCREASED [None]
  - CYANOSIS [None]
  - DYSPNOEA [None]
  - FOAMING AT MOUTH [None]
  - LOSS OF CONSCIOUSNESS [None]
  - OXYGEN SATURATION DECREASED [None]
  - PRURITUS GENERALISED [None]
  - SHOCK [None]
